FAERS Safety Report 26179920 (Version 1)
Quarter: 2025Q4

REPORT INFORMATION
  Report Type: Spontaneous
  Country: US (occurrence: US)
  Receive Date: 20251219
  Receipt Date: 20251219
  Transmission Date: 20260118
  Serious: Yes (Death, Other)
  Sender: INCYTE
  Company Number: US-INCYTE CORPORATION-2025IN014161

PATIENT

DRUGS (4)
  1. JAKAFI [Suspect]
     Active Substance: RUXOLITINIB
     Indication: Salvage therapy
     Dosage: UNK
     Route: 065
  2. VENETOCLAX [Concomitant]
     Active Substance: VENETOCLAX
     Indication: Salvage therapy
     Dosage: UNK
     Route: 065
  3. TOPOTECAN [Concomitant]
     Active Substance: TOPOTECAN HYDROCHLORIDE
     Indication: Salvage therapy
     Dosage: UNK
     Route: 065
  4. THIOTEPA [Concomitant]
     Active Substance: THIOTEPA
     Indication: Salvage therapy
     Dosage: UNK
     Route: 065

REACTIONS (3)
  - Death [Fatal]
  - Central nervous system leukaemia [Unknown]
  - Off label use [Unknown]
